FAERS Safety Report 19748393 (Version 4)
Quarter: 2022Q2

REPORT INFORMATION
  Report Type: Report from Study
  Country: US (occurrence: US)
  Receive Date: 20210826
  Receipt Date: 20220411
  Transmission Date: 20220721
  Serious: No
  Sender: FDA-Public Use
  Company Number: US-NOVARTISTESTPH-NVSC2021US189768

PATIENT
  Age: 42 Year

DRUGS (2)
  1. COSENTYX [Suspect]
     Active Substance: SECUKINUMAB
     Indication: Psoriasis
     Dosage: 300 MG, QMO (BENEATH THE SKIN, USUALLY VIA INJECTION)
     Route: 058
     Dates: start: 202103
  2. COSENTYX [Suspect]
     Active Substance: SECUKINUMAB
     Dosage: 300 MG, QMO (BENEATH THE SKIN, USUALLY VIA INJECTION)
     Route: 058
     Dates: start: 202109

REACTIONS (2)
  - Injection site pain [Unknown]
  - Drug ineffective [Unknown]

NARRATIVE: CASE EVENT DATE: 20210301
